FAERS Safety Report 17617895 (Version 1)
Quarter: 2020Q2

REPORT INFORMATION
  Report Type: Spontaneous
  Country: US (occurrence: US)
  Receive Date: 20200402
  Receipt Date: 20200402
  Transmission Date: 20200713
  Serious: Yes (Hospitalization)
  Sender: FDA-Public Use
  Company Number: US-ELI_LILLY_AND_COMPANY-US202003012412

PATIENT
  Age: 64 Year
  Sex: Male

DRUGS (8)
  1. BASAGLAR [Suspect]
     Active Substance: INSULIN GLARGINE
     Indication: DIABETES MELLITUS
     Dosage: 20 INTERNATIONAL UNIT, DAILY
     Route: 058
     Dates: start: 201911
  2. BASAGLAR [Suspect]
     Active Substance: INSULIN GLARGINE
     Indication: DIABETES MELLITUS
     Dosage: 20 INTERNATIONAL UNIT, DAILY
     Route: 058
     Dates: start: 201911
  3. BASAGLAR [Suspect]
     Active Substance: INSULIN GLARGINE
     Dosage: 20 INTERNATIONAL UNIT, DAILY
     Route: 058
  4. GLIPIZIDE. [Concomitant]
     Active Substance: GLIPIZIDE
     Indication: DIABETES MELLITUS
     Dosage: 2 DOSAGE FORM, DAILY
     Route: 065
  5. BASAGLAR [Suspect]
     Active Substance: INSULIN GLARGINE
     Dosage: 20 INTERNATIONAL UNIT, DAILY
     Route: 058
  6. WARFARIN [Concomitant]
     Active Substance: WARFARIN
     Indication: PRODUCT USED FOR UNKNOWN INDICATION
     Dosage: UNK, UNKNOWN
     Route: 065
  7. BASAGLAR [Suspect]
     Active Substance: INSULIN GLARGINE
     Indication: DIABETES MELLITUS
     Dosage: 20 INTERNATIONAL UNIT, DAILY
     Route: 058
     Dates: start: 201911
  8. BASAGLAR [Suspect]
     Active Substance: INSULIN GLARGINE
     Dosage: 20 INTERNATIONAL UNIT, DAILY
     Route: 058

REACTIONS (2)
  - Myocardial infarction [Recovered/Resolved]
  - Cardiac disorder [Unknown]

NARRATIVE: CASE EVENT DATE: 201912
